FAERS Safety Report 23251669 (Version 1)
Quarter: 2023Q4

REPORT INFORMATION
  Report Type: Spontaneous
  Country: US (occurrence: None)
  Receive Date: 20231130
  Receipt Date: 20231130
  Transmission Date: 20240109
  Serious: Yes (Other)
  Sender: FDA-Public Use
  Company Number: None

PATIENT
  Sex: Female

DRUGS (5)
  1. PROLIA [Suspect]
     Active Substance: DENOSUMAB
     Indication: Senile osteoporosis
     Dosage: OCE FOR 1 DOSE
     Route: 058
     Dates: start: 20230607
  2. CLOZAPINE [Concomitant]
     Active Substance: CLOZAPINE
  3. LEXAPRO [Concomitant]
  4. METOPROL [Concomitant]
  5. ROSUVASTATIN [Concomitant]

REACTIONS (1)
  - Breast cancer [None]
